FAERS Safety Report 10771232 (Version 1)
Quarter: 2015Q1

REPORT INFORMATION
  Report Type: Spontaneous
  Country: HU (occurrence: HU)
  Receive Date: 20150206
  Receipt Date: 20150206
  Transmission Date: 20150721
  Serious: Yes (Other)
  Sender: FDA-Public Use
  Company Number: PHHY2015HU014315

PATIENT
  Age: 33 Year
  Sex: Female
  Weight: 55 kg

DRUGS (1)
  1. GLIVEC [Suspect]
     Active Substance: IMATINIB MESYLATE
     Indication: CHRONIC MYELOID LEUKAEMIA
     Dosage: 400 MG, QD
     Route: 048
     Dates: start: 20140129, end: 20141007

REACTIONS (4)
  - Liver disorder [Recovered/Resolved]
  - Hepatomegaly [Unknown]
  - Hepatic enzyme increased [Unknown]
  - Jaundice [Unknown]

NARRATIVE: CASE EVENT DATE: 20140923
